FAERS Safety Report 9254629 (Version 1)
Quarter: 2013Q1

REPORT INFORMATION
  Report Type: Spontaneous
  Country: US (occurrence: None)
  Receive Date: 20121203
  Receipt Date: 20121203
  Transmission Date: 20140127
  Serious: Yes (Other)
  Sender: FDA-Public Use
  Company Number: 2012SP017432

PATIENT
  Age: 34 Year
  Sex: Female
  Weight: 77.1 kg

DRUGS (1)
  1. NUVARING (ETONOGESTREL (+) ETHINYL ESTRADIOL) VAGINAL RING [Suspect]
     Indication: CONTRACEPTION
     Dates: start: 2009, end: 200904

REACTIONS (2)
  - Pulmonary embolism [None]
  - Deep vein thrombosis [None]
